FAERS Safety Report 9658060 (Version 2)
Quarter: 2013Q4

REPORT INFORMATION
  Report Type: Spontaneous
  Country: DE (occurrence: DE)
  Receive Date: 20131030
  Receipt Date: 20131125
  Transmission Date: 20140711
  Serious: Yes (Other)
  Sender: FDA-Public Use
  Company Number: DE-BRISTOL-MYERS SQUIBB COMPANY-19633726

PATIENT
  Age: 67 Year
  Sex: Male

DRUGS (6)
  1. ELIQUIS [Suspect]
     Indication: ATRIAL FIBRILLATION
  2. L-THYROXINE [Concomitant]
     Dosage: L-THYROXIN HENNING 50
  3. DOXACOR [Concomitant]
  4. PANTOPRAZOLE [Concomitant]
  5. TEMOZOLOMIDE [Concomitant]
  6. INSULIN [Concomitant]

REACTIONS (2)
  - Diabetic foot [Unknown]
  - Blood glucose abnormal [Unknown]
